FAERS Safety Report 16348796 (Version 2)
Quarter: 2019Q3

REPORT INFORMATION
  Report Type: Spontaneous
  Country: US (occurrence: US)
  Receive Date: 20190523
  Receipt Date: 20190801
  Transmission Date: 20191004
  Serious: Yes (Other)
  Sender: FDA-Public Use
  Company Number: US-JNJFOC-20190525513

PATIENT
  Age: 53 Year
  Sex: Male
  Weight: 83.99 kg

DRUGS (5)
  1. CONCERTA [Suspect]
     Active Substance: METHYLPHENIDATE HYDROCHLORIDE
     Indication: ATTENTION DEFICIT/HYPERACTIVITY DISORDER
     Route: 048
     Dates: start: 201509, end: 201903
  2. HUMERA [Concomitant]
     Active Substance: ADALIMUMAB
     Indication: CROHN^S DISEASE
     Route: 065
  3. 6-MP [Concomitant]
     Active Substance: MERCAPTOPURINE
     Indication: CROHN^S DISEASE
     Route: 065
  4. ZOLOFT [Concomitant]
     Active Substance: SERTRALINE HYDROCHLORIDE
     Indication: PRODUCT USED FOR UNKNOWN INDICATION
     Route: 065
  5. CONCERTA [Suspect]
     Active Substance: METHYLPHENIDATE HYDROCHLORIDE
     Route: 048
     Dates: start: 2016

REACTIONS (2)
  - Product residue present [Unknown]
  - Crohn^s disease [Recovering/Resolving]

NARRATIVE: CASE EVENT DATE: 201903
